FAERS Safety Report 10229394 (Version 1)
Quarter: 2014Q2

REPORT INFORMATION
  Report Type: Report from Study
  Country: CN (occurrence: CN)
  Receive Date: 20140611
  Receipt Date: 20140611
  Transmission Date: 20141212
  Serious: Yes (Hospitalization)
  Sender: FDA-Public Use
  Company Number: CN-ROCHE-1413869

PATIENT
  Age: 54 Year
  Sex: Female
  Weight: 62 kg

DRUGS (5)
  1. OBINUTUZUMAB [Suspect]
     Indication: DIFFUSE LARGE B-CELL LYMPHOMA
     Dosage: DATE OF MOST RECENT DOSE (VOLUME :250 ML AND DOSE CONCENTRATION : 4 MG/ML) PRIOR TO AE ONSET : 10/MA
     Route: 042
     Dates: start: 20140206
  2. CYCLOPHOSPHAMIDE [Suspect]
     Indication: DIFFUSE LARGE B-CELL LYMPHOMA
     Dosage: DATE OF MOST RECENT DOSE (1245 MG) PRIOR TO AE ONSET : 11/MAY/2014.
     Route: 042
     Dates: start: 20140207
  3. DOXORUBICIN [Suspect]
     Indication: DIFFUSE LARGE B-CELL LYMPHOMA
     Dosage: DATE OF MOST RECENT DOSE (83 MG) PRIOR TO AE ONSET : 11/MAY/2014.
     Route: 042
     Dates: start: 20140207
  4. VINCRISTINE [Suspect]
     Indication: DIFFUSE LARGE B-CELL LYMPHOMA
     Dosage: DATE OF MOST RECENT DOSE (2 MG) PRIOR TO AE ONSET : 11/MAY/2014.
     Route: 040
     Dates: start: 20140207
  5. PREDNISONE [Suspect]
     Indication: DIFFUSE LARGE B-CELL LYMPHOMA
     Dosage: DATE OF MOST RECENT DOSE (100 MG) PRIOR TO AE ONSET : 11/MAY/2014.
     Route: 048
     Dates: start: 20140206

REACTIONS (1)
  - Pulmonary fibrosis [Not Recovered/Not Resolved]
